FAERS Safety Report 21229530 (Version 1)
Quarter: 2022Q3

REPORT INFORMATION
  Report Type: Spontaneous
  Country: CN (occurrence: CN)
  Receive Date: 20220818
  Receipt Date: 20220818
  Transmission Date: 20221026
  Serious: Yes (Hospitalization)
  Sender: FDA-Public Use
  Company Number: CN-009507513-2208CHN005741

PATIENT
  Sex: Female
  Weight: 60 kg

DRUGS (4)
  1. JANUMET [Suspect]
     Active Substance: METFORMIN HYDROCHLORIDE\SITAGLIPTIN PHOSPHATE
     Indication: Diabetes mellitus
     Dosage: 1 TABLET, QD
     Route: 048
     Dates: start: 20211218, end: 20220108
  2. EPALRESTAT [Suspect]
     Active Substance: EPALRESTAT
     Indication: Diabetes mellitus
     Dosage: 50 MG, TID, ORAL
     Route: 048
     Dates: start: 20211208, end: 20220108
  3. INVOKANA [Suspect]
     Active Substance: CANAGLIFLOZIN
     Indication: Diabetes mellitus
     Dosage: 0.1 G, QD, ORAL
     Route: 048
     Dates: start: 20211218, end: 20220108
  4. ROSUVASTATIN CALCIUM [Suspect]
     Active Substance: ROSUVASTATIN CALCIUM
     Indication: Diabetes mellitus
     Dosage: 5 MG, QD, ORAL
     Route: 048
     Dates: start: 20211208, end: 20220108

REACTIONS (2)
  - Gastritis [Unknown]
  - Product use issue [Unknown]

NARRATIVE: CASE EVENT DATE: 20220108
